FAERS Safety Report 8551689-7 (Version None)
Quarter: 2012Q3

REPORT INFORMATION
  Report Type: 
  Country: None (occurrence: None)
  Receive Date: 20120730
  Receipt Date: 20120725
  Transmission Date: 20120928
  Serious: Yes (Hospitalization, Other)
  Sender: FDA-Public Use
  Company Number: CA-ROCHE-1052561

PATIENT
  Sex: Female
  Weight: 59.02 kg

DRUGS (1)
  1. ACTEMRA [Suspect]
     Indication: RHEUMATOID ARTHRITIS
     Route: 042
     Dates: start: 20111101, end: 20120629

REACTIONS (5)
  - SYSTEMIC LUPUS ERYTHEMATOSUS [None]
  - BRONCHITIS [None]
  - ASTHMA [None]
  - LUNG INFECTION [None]
  - HYPERTENSION [None]
